FAERS Safety Report 5602602-3 (Version None)
Quarter: 2008Q1

REPORT INFORMATION
  Report Type: 
  Country: None (occurrence: None)
  Receive Date: 20080125
  Receipt Date: 20080117
  Transmission Date: 20080703
  Serious: Yes (Life-Threatening, Hospitalization)
  Sender: FDA-Public Use
  Company Number: JP-GENENTECH-252956

PATIENT
  Sex: Male
  Weight: 52.2 kg

DRUGS (6)
  1. RITUXAN [Suspect]
     Indication: NON-HODGKIN'S LYMPHOMA
     Dosage: 560 MG, UNKNOWN
     Route: 065
     Dates: start: 20060718
  2. PIRARUBICIN [Suspect]
     Indication: NON-HODGKIN'S LYMPHOMA
     Dosage: 45 MG, UNK
     Dates: start: 20060719
  3. CYCLOPHOSPHAMIDE [Suspect]
     Indication: NON-HODGKIN'S LYMPHOMA
     Dosage: 450 MG, UNK
     Dates: start: 20060719
  4. VINCRISTINE [Suspect]
     Indication: NON-HODGKIN'S LYMPHOMA
     Dosage: 1.5 G, UNK
     Dates: start: 20060719
  5. PREDNISOLONE [Suspect]
     Indication: NON-HODGKIN'S LYMPHOMA
     Dosage: 40 MG, UNK
     Dates: start: 20060719
  6. ANTIHYPERTENSIVE DRUG [Concomitant]
     Indication: PREMEDICATION

REACTIONS (1)
  - PNEUMOCYSTIS JIROVECI PNEUMONIA [None]
